FAERS Safety Report 11218207 (Version 11)
Quarter: 2017Q4

REPORT INFORMATION
  Report Type: Report from Study
  Country: DE (occurrence: DE)
  Receive Date: 20150625
  Receipt Date: 20171205
  Transmission Date: 20180320
  Serious: Yes (Hospitalization, Other)
  Sender: FDA-Public Use
  Company Number: DE-JNJFOC-20150617140

PATIENT
  Age: 68 Year
  Sex: Female

DRUGS (14)
  1. AMLODIPINE [Concomitant]
     Active Substance: AMLODIPINE BESYLATE
     Route: 065
     Dates: start: 20141201, end: 20170306
  2. RAMIPRIL. [Concomitant]
     Active Substance: RAMIPRIL
     Route: 065
     Dates: start: 2008
  3. VEDOLIZUMAB [Concomitant]
     Active Substance: VEDOLIZUMAB
     Route: 065
     Dates: start: 20170619
  4. FOSAMAX [Concomitant]
     Active Substance: ALENDRONATE SODIUM
     Route: 065
     Dates: start: 20150622
  5. PANTOPRAZOL [Concomitant]
     Active Substance: PANTOPRAZOLE SODIUM
     Route: 065
     Dates: start: 2012
  6. MOXONIDIN [Concomitant]
     Active Substance: MOXONIDINE
     Route: 065
     Dates: start: 20150701
  7. MOXONIDIN [Concomitant]
     Active Substance: MOXONIDINE
     Route: 065
     Dates: start: 20141223, end: 20150630
  8. METOPROLOL. [Concomitant]
     Active Substance: METOPROLOL
     Route: 065
     Dates: start: 20170622
  9. VITAMIN D [Concomitant]
     Active Substance: CHOLECALCIFEROL
     Route: 065
     Dates: start: 20141223
  10. SIMPONI [Suspect]
     Active Substance: GOLIMUMAB
     Indication: COLITIS ULCERATIVE
     Route: 058
     Dates: start: 20150803, end: 20151009
  11. SIMPONI [Suspect]
     Active Substance: GOLIMUMAB
     Indication: COLITIS ULCERATIVE
     Route: 058
     Dates: start: 20150703, end: 20150706
  12. SIMPONI [Suspect]
     Active Substance: GOLIMUMAB
     Indication: COLITIS ULCERATIVE
     Route: 058
     Dates: start: 20150609, end: 20150609
  13. LOPERAMID [Concomitant]
     Active Substance: LOPERAMIDE
     Route: 065
     Dates: start: 2012
  14. METOPROLOL. [Concomitant]
     Active Substance: METOPROLOL
     Route: 065
     Dates: start: 20150701, end: 20170621

REACTIONS (6)
  - Clostridial infection [Recovering/Resolving]
  - Carotid artery stenosis [Unknown]
  - Colitis ulcerative [Recovered/Resolved]
  - Drug ineffective [Unknown]
  - Urinary tract infection bacterial [Unknown]
  - Cataract [Recovered/Resolved]

NARRATIVE: CASE EVENT DATE: 201506
